FAERS Safety Report 8232357-8 (Version None)
Quarter: 2012Q1

REPORT INFORMATION
  Report Type: 
  Country: None (occurrence: None)
  Receive Date: 20120323
  Receipt Date: 20120316
  Transmission Date: 20120608
  Serious: Yes (Other)
  Sender: FDA-Public Use
  Company Number: CA-GLAXOSMITHKLINE-A0970050A

PATIENT
  Age: 83 Year
  Sex: Male

DRUGS (2)
  1. WARFARIN SODIUM [Concomitant]
     Indication: PRODUCT USED FOR UNKNOWN INDICATION
     Dosage: 12.5MG UNKNOWN
     Route: 065
  2. ARIXTRA [Suspect]
     Indication: EMBOLISM VENOUS
     Dosage: 5MG UNKNOWN
     Route: 058
     Dates: start: 20120101

REACTIONS (2)
  - TRANSIENT ISCHAEMIC ATTACK [None]
  - HAEMORRHAGE [None]
